FAERS Safety Report 23523334 (Version 1)
Quarter: 2024Q1

REPORT INFORMATION
  Report Type: Spontaneous
  Country: US (occurrence: None)
  Receive Date: 20240214
  Receipt Date: 20240214
  Transmission Date: 20240409
  Serious: No
  Sender: FDA-Public Use
  Company Number: None

PATIENT
  Sex: 0

DRUGS (2)
  1. BUDESONIDE [Suspect]
     Active Substance: BUDESONIDE
  2. MESALAMINE [Suspect]
     Active Substance: MESALAMINE

REACTIONS (1)
  - Drug ineffective [None]
